FAERS Safety Report 15264248 (Version 2)
Quarter: 2018Q3

REPORT INFORMATION
  Report Type: Spontaneous
  Country: FR (occurrence: FR)
  Receive Date: 20180810
  Receipt Date: 20180810
  Transmission Date: 20181010
  Serious: Yes (Hospitalization, Other)
  Sender: FDA-Public Use
  Company Number: PHHY2018FR067376

PATIENT
  Age: 68 Year
  Sex: Male
  Weight: 66 kg

DRUGS (3)
  1. CICLOSPORIN [Suspect]
     Active Substance: CYCLOSPORINE
     Indication: PROPHYLAXIS AGAINST TRANSPLANT REJECTION
     Dosage: 130 MG, UNK
     Route: 042
  2. FLAGYL [Suspect]
     Active Substance: METRONIDAZOLE\METRONIDAZOLE HYDROCHLORIDE
     Indication: FEBRILE BONE MARROW APLASIA
     Dosage: 1500 MG, UNK
     Route: 042
  3. AXEPIM [Suspect]
     Active Substance: CEFEPIME HYDROCHLORIDE
     Indication: FEBRILE BONE MARROW APLASIA
     Dosage: 6 G, UNK
     Route: 042

REACTIONS (2)
  - Encephalopathy [Not Recovered/Not Resolved]
  - Diabetic hyperosmolar coma [Not Recovered/Not Resolved]

NARRATIVE: CASE EVENT DATE: 20180415
